FAERS Safety Report 15783002 (Version 1)
Quarter: 2019Q1

REPORT INFORMATION
  Report Type: Spontaneous
  Country: US (occurrence: US)
  Receive Date: 20190102
  Receipt Date: 20190102
  Transmission Date: 20190417
  Serious: No
  Sender: FDA-Public Use
  Company Number: US-PERRIGO-18US000416

PATIENT
  Age: 83 Year
  Sex: Female
  Weight: 72.11 kg

DRUGS (2)
  1. GUAIFENESIN. [Suspect]
     Active Substance: GUAIFENESIN
     Indication: RESPIRATORY TRACT CONGESTION
     Dosage: 1200 MG EVERY 12 HOURS, PRN
     Route: 048
     Dates: start: 2017, end: 2017
  2. GUAIFENESIN. [Suspect]
     Active Substance: GUAIFENESIN
     Dosage: 1200 MG EVERY 12 HOURS
     Route: 048
     Dates: start: 20171231

REACTIONS (4)
  - Oral pain [Unknown]
  - Wrong technique in product usage process [Recovered/Resolved]
  - Expired product administered [Unknown]
  - Incorrect product administration duration [Unknown]

NARRATIVE: CASE EVENT DATE: 20171231
